FAERS Safety Report 7633295-1 (Version None)
Quarter: 2011Q3

REPORT INFORMATION
  Report Type: 
  Country: None (occurrence: None)
  Receive Date: 20110725
  Receipt Date: 20110719
  Transmission Date: 20111222
  Serious: Yes (Other)
  Sender: FDA-Public Use
  Company Number: US-SANOFI-AVENTIS-2011SA046888

PATIENT
  Age: 65 Year
  Sex: Female

DRUGS (2)
  1. MULTAQ [Suspect]
     Indication: ATRIAL FIBRILLATION
     Route: 048
     Dates: start: 20110701
  2. DILTIAZEM [Suspect]
     Route: 065

REACTIONS (5)
  - CHEST PAIN [None]
  - FATIGUE [None]
  - BLOOD PRESSURE INCREASED [None]
  - TREMOR [None]
  - ATRIAL FIBRILLATION [None]
